FAERS Safety Report 10690693 (Version 1)
Quarter: 2015Q1

REPORT INFORMATION
  Report Type: Spontaneous
  Country: HR (occurrence: HR)
  Receive Date: 20150105
  Receipt Date: 20150105
  Transmission Date: 20150720
  Serious: Yes (Hospitalization)
  Sender: FDA-Public Use
  Company Number: HR-TEVA-531378ISR

PATIENT
  Age: 74 Year
  Sex: Male
  Weight: 86 kg

DRUGS (6)
  1. FLUOROURACIL PLIVA 500 MG/10 ML [Suspect]
     Active Substance: FLUOROURACIL
     Indication: RECTAL CANCER
     Route: 042
     Dates: start: 20140912, end: 20141116
  2. SPIRIVA [Concomitant]
     Active Substance: TIOTROPIUM BROMIDE MONOHYDRATE
     Indication: CHRONIC OBSTRUCTIVE PULMONARY DISEASE
     Dosage: CAPSULES, INHALER
     Route: 048
  3. SERETIDE 500 DISKUS [Concomitant]
     Indication: CHRONIC OBSTRUCTIVE PULMONARY DISEASE
     Dosage: POWDERS, UNIT DOSE POWDER INHALER NON-REFILLABLE
     Route: 048
  4. DALNEVA [Concomitant]
     Indication: HYPERTENSION
     Route: 048
  5. CONCOR [Concomitant]
     Active Substance: BISOPROLOL FUMARATE
     Indication: HYPERTENSION
     Route: 048
  6. CALCIUM FOLINATE [Suspect]
     Active Substance: LEUCOVORIN CALCIUM
     Indication: RECTAL CANCER
     Dosage: AMPULAS
     Route: 042
     Dates: start: 20140912, end: 20141116

REACTIONS (1)
  - Febrile neutropenia [Recovered/Resolved]

NARRATIVE: CASE EVENT DATE: 20141116
